FAERS Safety Report 16776238 (Version 1)
Quarter: 2019Q3

REPORT INFORMATION
  Report Type: Spontaneous
  Country: CA (occurrence: CA)
  Receive Date: 20190905
  Receipt Date: 20190905
  Transmission Date: 20191005
  Serious: Yes (Other)
  Sender: FDA-Public Use
  Company Number: CA-PFIZER INC-2019382221

PATIENT
  Age: 62 Year
  Sex: Male

DRUGS (10)
  1. ACTEMRA [Suspect]
     Active Substance: TOCILIZUMAB
     Dosage: UNK
     Route: 042
  2. HYDROMORPHONE HYDROCHLORIDE. [Concomitant]
     Active Substance: HYDROMORPHONE HYDROCHLORIDE
     Dosage: UNK
  3. ACTEMRA [Suspect]
     Active Substance: TOCILIZUMAB
     Dosage: 800 MG, 1 EVERY 3 WEEKS
     Route: 042
  4. INSULIN LISPRO PROTAMINE [Concomitant]
     Active Substance: INSULIN LISPRO
     Dosage: UNK
  5. RAMIPRIL. [Concomitant]
     Active Substance: RAMIPRIL
     Dosage: UNK
  6. DICLOFENAC [Suspect]
     Active Substance: DICLOFENAC
     Dosage: UNK UNK, 2 EVERY 1 DAY(S)
     Route: 065
  7. ACTEMRA [Suspect]
     Active Substance: TOCILIZUMAB
     Indication: RHEUMATOID ARTHRITIS
     Dosage: 800 MG, 1 EVERY 4 WEEKS
     Route: 042
  8. ROSUVASTATIN CALCIUM. [Concomitant]
     Active Substance: ROSUVASTATIN CALCIUM
     Dosage: UNK
  9. METHOTREXATE SODIUM. [Suspect]
     Active Substance: METHOTREXATE SODIUM
     Dosage: 10 MG, 1 EVERY 1 WEEK(S)
     Route: 065
  10. INSULIN [Concomitant]
     Active Substance: INSULIN NOS
     Dosage: UNK

REACTIONS (15)
  - Poor venous access [Unknown]
  - Hepatic enzyme increased [Unknown]
  - Pharyngitis [Unknown]
  - Tremor [Unknown]
  - Vomiting [Unknown]
  - Drug ineffective [Unknown]
  - Oedema peripheral [Unknown]
  - Swelling [Unknown]
  - Arthralgia [Unknown]
  - Pain in extremity [Unknown]
  - Pruritus [Unknown]
  - Gait disturbance [Unknown]
  - Musculoskeletal stiffness [Unknown]
  - Peripheral swelling [Unknown]
  - Therapeutic response decreased [Unknown]
